FAERS Safety Report 21430158 (Version 1)
Quarter: 2022Q4

REPORT INFORMATION
  Report Type: Spontaneous
  Country: DE (occurrence: DE)
  Receive Date: 20221009
  Receipt Date: 20221009
  Transmission Date: 20230112
  Serious: Yes (Other)
  Sender: FDA-Public Use
  Company Number: DE-TEVA-2022-DE-2080047

PATIENT
  Age: 46 Year
  Sex: Female
  Weight: 64 kg

DRUGS (1)
  1. DICLOFENAC [Suspect]
     Active Substance: DICLOFENAC
     Indication: Product used for unknown indication
     Dosage: 200 MILLIGRAM DAILY;
     Route: 065
     Dates: start: 20220920, end: 20220921

REACTIONS (2)
  - Circulatory collapse [Recovered/Resolved]
  - Nausea [Recovered/Resolved]

NARRATIVE: CASE EVENT DATE: 20220920
